FAERS Safety Report 8947803 (Version 2)
Quarter: 2013Q1

REPORT INFORMATION
  Report Type: Spontaneous
  Country: DK (occurrence: None)
  Receive Date: 20121127
  Receipt Date: 20121214
  Transmission Date: 20140127
  Serious: Yes (Hospitalization)
  Sender: FDA-Public Use
  Company Number: 2012MA013476

PATIENT
  Age: 64 Year
  Sex: Female

DRUGS (3)
  1. CARBOPLATIN [Suspect]
     Indication: OVARIAN CANCER
     Dosage: (PACKAGED IN 50MG/5ML, 150MG/15ML, 450MG/45ML, AND 600MG/60ML MULTI-DOSE VIALS)
     Route: 042
     Dates: start: 20120921
  2. PACLITAXEL [Suspect]
     Indication: OVARIAN CANCER
     Route: 042
  3. BEVACIZUMAB [Suspect]
     Indication: OVARIAN CANCER
     Dates: start: 20120921, end: 20121105

REACTIONS (5)
  - Neutropenic sepsis [None]
  - Hypertension [None]
  - Syncope [None]
  - Ovarian cancer [None]
  - Malignant neoplasm progression [None]
